FAERS Safety Report 4613916-8 (Version None)
Quarter: 2005Q1

REPORT INFORMATION
  Report Type: 
  Country: None (occurrence: None)
  Receive Date: 20050316
  Receipt Date: 20050303
  Transmission Date: 20050727
  Serious: Yes (Hospitalization, Disabling)
  Sender: FDA-Public Use
  Company Number: HQWYE963614DEC04

PATIENT
  Age: 20 Year
  Sex: Female

DRUGS (3)
  1. TRIONETTA (LEVONORTESTREL/ETHINYL ESTADIOL/INER) [Suspect]
     Indication: ORAL CONTRACEPTION
     Dosage: 1 TABLET 1X PER 1 DAY, ORAL
     Route: 048
     Dates: start: 20010501, end: 20011005
  2. MERCILON (DESOGESTREL/ETHINYLESTRADIOL, ) [Suspect]
     Indication: ORAL CONTRACEPTION
     Dosage: 1 TABLET 1X PER 1 DAY, ORAL
     Route: 048
     Dates: end: 20000101
  3. NORETHISTERONE (NORETHISTERONE,) [Suspect]
     Dosage: ORAL
     Route: 048

REACTIONS (3)
  - ANXIETY [None]
  - PANIC REACTION [None]
  - PULMONARY EMBOLISM [None]
